FAERS Safety Report 8036215-3 (Version None)
Quarter: 2012Q1

REPORT INFORMATION
  Report Type: 
  Country: None (occurrence: None)
  Receive Date: 20120111
  Receipt Date: 20120104
  Transmission Date: 20120608
  Serious: Yes (Death, Other)
  Sender: FDA-Public Use
  Company Number: PHHY2011GB101113

PATIENT
  Sex: Female

DRUGS (1)
  1. ENTACAPONE [Suspect]
     Indication: PARKINSON'S DISEASE
     Dosage: 200 MG, UNK
     Route: 048
     Dates: start: 20030101

REACTIONS (3)
  - PANCREATIC CARCINOMA [None]
  - DIARRHOEA [None]
  - DEATH [None]
